FAERS Safety Report 10038620 (Version 2)
Quarter: 2014Q1

REPORT INFORMATION
  Report Type: Spontaneous
  Country: US (occurrence: US)
  Receive Date: 20140326
  Receipt Date: 20140331
  Transmission Date: 20141002
  Serious: Yes (Other)
  Sender: FDA-Public Use
  Company Number: US-RB-064043-14

PATIENT
  Sex: Male

DRUGS (3)
  1. MUCINEX DM MAXIMUM STRENGTH [Suspect]
     Indication: PULMONARY CONGESTION
     Dosage: UNKNOWN DOSES
     Route: 048
  2. MUCINEX DM MAXIMUM STRENGTH [Suspect]
     Indication: COUGH
     Dosage: TOOK 1 TABLET ON 17-MAR-2014.
     Route: 048
     Dates: start: 20140317
  3. PROZAC [Concomitant]
     Indication: PRODUCT USED FOR UNKNOWN INDICATION

REACTIONS (2)
  - Syncope [Recovered/Resolved]
  - Dizziness [Recovered/Resolved]
